FAERS Safety Report 14783362 (Version 1)
Quarter: 2018Q2

REPORT INFORMATION
  Report Type: Spontaneous
  Country: US (occurrence: US)
  Receive Date: 20180420
  Receipt Date: 20180420
  Transmission Date: 20180711
  Serious: Yes (Other)
  Sender: FDA-Public Use
  Company Number: US-AMGEN-USASP2018051844

PATIENT
  Age: 77 Year
  Sex: Female

DRUGS (1)
  1. PROLIA [Suspect]
     Active Substance: DENOSUMAB
     Indication: OSTEOPOROSIS POSTMENOPAUSAL
     Dosage: UNK, Q6MO
     Route: 065
     Dates: start: 2015

REACTIONS (5)
  - Fall [Unknown]
  - Papule [Unknown]
  - Pain in extremity [Not Recovered/Not Resolved]
  - Fracture [Unknown]
  - Pruritus [Unknown]

NARRATIVE: CASE EVENT DATE: 2017
